FAERS Safety Report 9524331 (Version 1)
Quarter: 2013Q3

REPORT INFORMATION
  Report Type: Spontaneous
  Country: US (occurrence: US)
  Receive Date: 20130916
  Receipt Date: 20130916
  Transmission Date: 20140515
  Serious: No
  Sender: FDA-Public Use
  Company Number: US-B.I. PHARMACEUTICALS,INC./RIDGEFIELD-2013-BI-27682BP

PATIENT
  Age: 60 Year
  Sex: Female
  Weight: 50 kg

DRUGS (8)
  1. SPIRIVA [Suspect]
     Indication: CHRONIC OBSTRUCTIVE PULMONARY DISEASE
     Dosage: 18 MCG
     Route: 048
     Dates: start: 2005
  2. ALBUTEROL INHALER [Concomitant]
     Route: 055
  3. ALBUTEROL NEBULIZER [Concomitant]
     Route: 055
  4. PRILOSEC [Concomitant]
     Indication: GASTROOESOPHAGEAL REFLUX DISEASE
     Route: 048
  5. ADVAIR [Concomitant]
     Dosage: DOSE STRENGTH: 500/50 MG; DAILY DOSE: 1000/100 MG
     Route: 055
  6. NASACORT [Concomitant]
     Dosage: FORMULATION: NASAL SPRAY
     Route: 045
  7. ZYRTEC [Concomitant]
     Route: 048
  8. MULTIVITAMIN [Concomitant]
     Route: 048

REACTIONS (2)
  - Dyspnoea exertional [Not Recovered/Not Resolved]
  - Incorrect route of drug administration [Recovered/Resolved]
